FAERS Safety Report 9028575 (Version 1)
Quarter: 2013Q1

REPORT INFORMATION
  Report Type: Spontaneous
  Country: US (occurrence: US)
  Receive Date: 20130124
  Receipt Date: 20130124
  Transmission Date: 20140127
  Serious: Yes (Death)
  Sender: FDA-Public Use
  Company Number: US-GLAXOSMITHKLINE-A1009503A

PATIENT
  Sex: Female

DRUGS (8)
  1. VOTRIENT [Suspect]
     Dosage: 800MG PER DAY
     Route: 048
  2. REGLAN [Concomitant]
  3. LEVOTHYROXIN [Concomitant]
  4. VITAMIN D [Concomitant]
  5. CLARITIN [Concomitant]
  6. BIOTIN [Concomitant]
  7. MAGNESIUM [Concomitant]
  8. WARFARIN [Concomitant]

REACTIONS (1)
  - Death [Fatal]
